FAERS Safety Report 16344694 (Version 1)
Quarter: 2019Q2

REPORT INFORMATION
  Report Type: Report from Study
  Country: CH (occurrence: CH)
  Receive Date: 20190522
  Receipt Date: 20190522
  Transmission Date: 20190711
  Serious: Yes (Other)
  Sender: FDA-Public Use
  Company Number: GXKR2009CH15753

PATIENT
  Age: 56 Year
  Sex: Male
  Weight: 49 kg

DRUGS (4)
  1. LBH589 [Suspect]
     Active Substance: PANOBINOSTAT
     Indication: HEAD AND NECK CANCER
     Dosage: 30 MG, CYCLE 2 ; DAY OF CYCLE 8
     Route: 048
     Dates: start: 20090511, end: 20090610
  2. PACLITAXEL. [Suspect]
     Active Substance: PACLITAXEL
     Indication: HEAD AND NECK CANCER
     Dosage: 135 MG/M2, CYCLE 02, DAY OF CYCLE 1
     Route: 065
     Dates: start: 20090511
  3. CARBOPLATIN. [Suspect]
     Active Substance: CARBOPLATIN
     Indication: HEAD AND NECK CANCER
     Dosage: G/ML.H; CYCLE 2 DAY OF CYCLE 1
     Route: 065
     Dates: start: 20090511
  4. ACETYLSALICYLIC ACID [Concomitant]
     Active Substance: ASPIRIN
     Indication: PROPHYLAXIS
     Dosage: 100 MG, QD
     Route: 048
     Dates: end: 20090611

REACTIONS (1)
  - Thrombocytopenia [Unknown]

NARRATIVE: CASE EVENT DATE: 20090612
